FAERS Safety Report 10641827 (Version 1)
Quarter: 2014Q4

REPORT INFORMATION
  Report Type: Spontaneous
  Country: US (occurrence: US)
  Receive Date: 20141209
  Receipt Date: 20141209
  Transmission Date: 20150529
  Serious: No
  Sender: FDA-Public Use
  Company Number: US-ENDO PHARMACEUTICALS INC.-SOTA20140003

PATIENT
  Age: 72 Year
  Sex: Male

DRUGS (3)
  1. GLYCERYL TRINITRATE [Suspect]
     Active Substance: NITROGLYCERIN
     Indication: PRODUCT USED FOR UNKNOWN INDICATION
     Route: 061
  2. SOTALOL HYDROCHLORIDE TABLETS 120MG [Suspect]
     Active Substance: SOTALOL HYDROCHLORIDE
     Route: 048
     Dates: start: 201404
  3. SOTALOL HYDROCHLORIDE TABLETS 120MG [Suspect]
     Active Substance: SOTALOL HYDROCHLORIDE
     Indication: CARDIOVASCULAR EVENT PROPHYLAXIS
     Route: 048
     Dates: start: 201404, end: 201404

REACTIONS (2)
  - Blindness transient [Recovered/Resolved]
  - Musculoskeletal pain [Recovering/Resolving]

NARRATIVE: CASE EVENT DATE: 201404
